FAERS Safety Report 17213113 (Version 4)
Quarter: 2020Q2

REPORT INFORMATION
  Report Type: Report from Study
  Country: US (occurrence: US)
  Receive Date: 20191230
  Receipt Date: 20200428
  Transmission Date: 20200713
  Serious: Yes (Death, Hospitalization, Other)
  Sender: FDA-Public Use
  Company Number: PHHO2019US004101

PATIENT
  Age: 79 Year
  Sex: Male
  Weight: 102.1 kg

DRUGS (4)
  1. GSK2118436 [Suspect]
     Active Substance: DABRAFENIB
     Dosage: 100 MG, BID
     Route: 048
     Dates: start: 20180705, end: 20191126
  2. TRAMETINIB [Suspect]
     Active Substance: TRAMETINIB
     Indication: MALIGNANT MELANOMA
     Dosage: 2 MG, QD
     Route: 048
     Dates: start: 20171123, end: 20180704
  3. TRAMETINIB [Suspect]
     Active Substance: TRAMETINIB
     Dosage: 1.5 MG, QD
     Route: 048
     Dates: start: 20180705, end: 20181030
  4. GSK2118436 [Suspect]
     Active Substance: DABRAFENIB
     Indication: MALIGNANT MELANOMA
     Dosage: 150 MG, BID
     Route: 048
     Dates: start: 20171123, end: 20180704

REACTIONS (4)
  - Ejection fraction decreased [Recovered/Resolved with Sequelae]
  - Small intestinal haemorrhage [Fatal]
  - Urinary tract infection [Not Recovered/Not Resolved]
  - Atrial flutter [Not Recovered/Not Resolved]

NARRATIVE: CASE EVENT DATE: 20180705
